FAERS Safety Report 6109064-0 (Version None)
Quarter: 2009Q1

REPORT INFORMATION
  Report Type: 
  Country: None (occurrence: None)
  Receive Date: 20090310
  Receipt Date: 20090305
  Transmission Date: 20090719
  Serious: Yes (Hospitalization)
  Sender: FDA-Public Use
  Company Number: DE-CELGENEUS-062-C5013-09030314

PATIENT
  Sex: Male

DRUGS (1)
  1. CC-5013 [Suspect]
     Route: 048
     Dates: start: 20090302

REACTIONS (1)
  - TUMOUR FLARE [None]
